FAERS Safety Report 19799669 (Version 2)
Quarter: 2023Q1

REPORT INFORMATION
  Report Type: Spontaneous
  Country: DE (occurrence: DE)
  Receive Date: 20210907
  Receipt Date: 20230210
  Transmission Date: 20230418
  Serious: Yes (Other)
  Sender: FDA-Public Use
  Company Number: DE-BRISTOL-MYERS SQUIBB COMPANY-BMS-2021-086532

PATIENT
  Age: 37 Year
  Sex: Male

DRUGS (3)
  1. NIVOLUMAB [Suspect]
     Active Substance: NIVOLUMAB
     Indication: Osteosarcoma metastatic
     Dosage: 3 MILLIGRAM/KILOGRAM
     Dates: start: 201912
  2. NIVOLUMAB [Suspect]
     Active Substance: NIVOLUMAB
     Dosage: 240 MILLIGRAM, Q2WK
     Dates: start: 202006
  3. IPILIMUMAB [Suspect]
     Active Substance: IPILIMUMAB
     Indication: Osteosarcoma metastatic
     Dosage: 1 MILLIGRAM/KILOGRAM, Q3WK
     Dates: start: 201912

REACTIONS (3)
  - Facial paralysis [Unknown]
  - Immune-mediated lung disease [Unknown]
  - Off label use [Unknown]

NARRATIVE: CASE EVENT DATE: 20200301
